FAERS Safety Report 9252597 (Version 1)
Quarter: 2013Q2

REPORT INFORMATION
  Report Type: Spontaneous
  Country: HR (occurrence: HR)
  Receive Date: 20130424
  Receipt Date: 20130424
  Transmission Date: 20140414
  Serious: Yes (Other)
  Sender: FDA-Public Use
  Company Number: HR-TEVA-398833ISR

PATIENT
  Age: 74 Year
  Sex: Male

DRUGS (4)
  1. RISSET [Suspect]
     Indication: PSYCHOTIC DISORDER
     Dosage: 1 MILLIGRAM DAILY;
     Route: 048
     Dates: start: 20120221, end: 20130108
  2. PRAZINE [Suspect]
     Indication: NERVOUSNESS
     Dosage: 50 MILLIGRAM DAILY;
     Route: 048
     Dates: start: 20120221
  3. AKINETON [Concomitant]
     Dosage: 2 MILLIGRAM DAILY;
     Route: 048
  4. EBIXA [Concomitant]
     Dosage: 20 MILLIGRAM DAILY;
     Route: 048

REACTIONS (3)
  - Urinary retention [Recovered/Resolved]
  - Oliguria [Recovered/Resolved]
  - Bladder pain [Recovered/Resolved]
